FAERS Safety Report 18946999 (Version 2)
Quarter: 2021Q1

REPORT INFORMATION
  Report Type: Spontaneous
  Country: US (occurrence: US)
  Receive Date: 20210226
  Receipt Date: 20210326
  Transmission Date: 20210420
  Serious: Yes (Other)
  Sender: FDA-Public Use
  Company Number: US-ROCHE-2708292

PATIENT
  Sex: Female

DRUGS (2)
  1. XELODA [Suspect]
     Active Substance: CAPECITABINE
     Indication: PRODUCT USED FOR UNKNOWN INDICATION
     Route: 065
     Dates: start: 20201002
  2. TUKYSA [Suspect]
     Active Substance: TUCATINIB
     Indication: PRODUCT USED FOR UNKNOWN INDICATION
     Route: 065
     Dates: start: 20201002

REACTIONS (12)
  - Headache [Recovering/Resolving]
  - Neutrophil count decreased [Unknown]
  - Lymphadenopathy [Recovered/Resolved]
  - Dizziness [Unknown]
  - Feeling abnormal [Unknown]
  - Pulmonary mass [Recovered/Resolved]
  - Fatigue [Unknown]
  - Optic neuritis [Unknown]
  - White blood cell count decreased [Unknown]
  - Eye disorder [Unknown]
  - Osteogenesis imperfecta [Unknown]
  - Brain oedema [Unknown]
